FAERS Safety Report 11336675 (Version 2)
Quarter: 2015Q3

REPORT INFORMATION
  Report Type: Spontaneous
  Country: US (occurrence: US)
  Receive Date: 20150804
  Receipt Date: 20150812
  Transmission Date: 20151125
  Serious: Yes (Hospitalization, Disabling, Other)
  Sender: FDA-Public Use
  Company Number: US-009507513-1507USA013191

PATIENT
  Age: 28 Year
  Sex: Male

DRUGS (9)
  1. TRAZODONE HYDROCHLORIDE. [Concomitant]
     Active Substance: TRAZODONE HYDROCHLORIDE
     Dosage: UNK
  2. KEPPRA [Concomitant]
     Active Substance: LEVETIRACETAM
     Dosage: UNK
  3. XANAX [Concomitant]
     Active Substance: ALPRAZOLAM
     Dosage: UNK
  4. BELSOMRA [Suspect]
     Active Substance: SUVOREXANT
     Dosage: UNKNOWN
     Route: 048
     Dates: end: 2015
  5. BACLOFEN. [Concomitant]
     Active Substance: BACLOFEN
     Dosage: UNK
  6. FLAGYL [Concomitant]
     Active Substance: METRONIDAZOLE\METRONIDAZOLE HYDROCHLORIDE
     Dosage: UNK
  7. LOVENOX [Concomitant]
     Active Substance: ENOXAPARIN SODIUM
     Dosage: UNK
  8. COUMADIN [Concomitant]
     Active Substance: WARFARIN SODIUM
     Dosage: UNK
  9. ZOLOFT [Concomitant]
     Active Substance: SERTRALINE HYDROCHLORIDE
     Dosage: UNK

REACTIONS (9)
  - Amnesia [Not Recovered/Not Resolved]
  - Acute promyelocytic leukaemia [Not Recovered/Not Resolved]
  - Pulmonary embolism [Not Recovered/Not Resolved]
  - Hemiplegia [Not Recovered/Not Resolved]
  - Apraxia [Not Recovered/Not Resolved]
  - Blast cell crisis [Not Recovered/Not Resolved]
  - Cerebrovascular accident [Not Recovered/Not Resolved]
  - Constipation [Not Recovered/Not Resolved]
  - Activities of daily living impaired [Not Recovered/Not Resolved]

NARRATIVE: CASE EVENT DATE: 201507
